FAERS Safety Report 23736479 (Version 1)
Quarter: 2024Q2

REPORT INFORMATION
  Report Type: Spontaneous
  Country: US (occurrence: US)
  Receive Date: 20240412
  Receipt Date: 20240412
  Transmission Date: 20240715
  Serious: No
  Sender: FDA-Public Use
  Company Number: US-ASTELLAS-2023EU000971

PATIENT
  Sex: Male
  Weight: 57.1 kg

DRUGS (7)
  1. PROGRAF [Suspect]
     Active Substance: TACROLIMUS
     Indication: Crohn^s disease
     Route: 048
  2. PROGRAF [Suspect]
     Active Substance: TACROLIMUS
     Dosage: 2 DF, TWICE DAILY (2 CAPSULES IN THE MORNING AND 2 CAPSULES BEFORE BEDTIME)
     Route: 048
  3. PROGRAF [Suspect]
     Active Substance: TACROLIMUS
     Dosage: UNK UNK, TWICE DAILY (4 CAPSULES IN THE MORNING AND 3 CAPSULE BEFORE BEDTIME)
     Route: 048
     Dates: start: 20230331
  4. TREXALL [Concomitant]
     Active Substance: METHOTREXATE SODIUM
     Indication: Crohn^s disease
     Route: 048
  5. TREXALL [Concomitant]
     Active Substance: METHOTREXATE SODIUM
     Route: 048
  6. STELARA [Concomitant]
     Active Substance: USTEKINUMAB
     Indication: Crohn^s disease
     Route: 058
     Dates: start: 20220410
  7. STELARA [Concomitant]
     Active Substance: USTEKINUMAB
     Dosage: 1 ML (90 MG TOTAL), OTHER (EVERY 8 WEEKS)
     Route: 058

REACTIONS (2)
  - Immunosuppressant drug level abnormal [Unknown]
  - Off label use [Unknown]
